FAERS Safety Report 22234837 (Version 2)
Quarter: 2023Q2

REPORT INFORMATION
  Report Type: Spontaneous
  Country: AU (occurrence: AU)
  Receive Date: 20230420
  Receipt Date: 20230517
  Transmission Date: 20230722
  Serious: Yes (Hospitalization, Other)
  Sender: FDA-Public Use
  Company Number: AU-PFIZER INC-202300162160

PATIENT
  Age: 35 Year
  Sex: Male
  Weight: 104 kg

DRUGS (2)
  1. DIAZEPAM [Suspect]
     Active Substance: DIAZEPAM
     Dosage: 30 MG
  2. ACETAMINOPHEN [Suspect]
     Active Substance: ACETAMINOPHEN
     Dosage: 2 G
     Dates: end: 20230131

REACTIONS (2)
  - Suicide attempt [Unknown]
  - Overdose [Unknown]
